FAERS Safety Report 15837836 (Version 1)
Quarter: 2019Q1

REPORT INFORMATION
  Report Type: Spontaneous
  Country: US (occurrence: US)
  Receive Date: 20190117
  Receipt Date: 20190117
  Transmission Date: 20190417
  Serious: Yes (Disabling)
  Sender: FDA-Public Use
  Company Number: None

PATIENT
  Age: 56 Year
  Sex: Female
  Weight: 46.8 kg

DRUGS (4)
  1. HYDROXYUREA. [Suspect]
     Active Substance: HYDROXYUREA
     Indication: DOUBLE HETEROZYGOUS SICKLING DISORDERS
     Dosage: ?          QUANTITY:1 CAPSULE(S);?
     Route: 048
     Dates: start: 20181017, end: 20190117
  2. HYDROXYUREA. [Suspect]
     Active Substance: HYDROXYUREA
     Indication: SICKLE CELL ANAEMIA
     Dosage: ?          QUANTITY:1 CAPSULE(S);?
     Route: 048
     Dates: start: 20181017, end: 20190117
  3. ENDARI [Suspect]
     Active Substance: GLUTAMINE
     Indication: DOUBLE HETEROZYGOUS SICKLING DISORDERS
     Dosage: ?          QUANTITY:2 TWO 5G PACKETS;OTHER ROUTE:MIXED WITH 8 OZ OF LIQUID?
     Dates: start: 20180622, end: 20180720
  4. ENDARI [Suspect]
     Active Substance: GLUTAMINE
     Indication: SICKLE CELL ANAEMIA
     Dosage: ?          QUANTITY:2 TWO 5G PACKETS;OTHER ROUTE:MIXED WITH 8 OZ OF LIQUID?
     Dates: start: 20180622, end: 20180720

REACTIONS (7)
  - Blood creatinine increased [None]
  - Joint swelling [None]
  - Oedema [None]
  - Dehydration [None]
  - Alopecia [None]
  - Weight decreased [None]
  - Tinnitus [None]

NARRATIVE: CASE EVENT DATE: 20180701
